FAERS Safety Report 10837607 (Version 1)
Quarter: 2015Q1

REPORT INFORMATION
  Report Type: Spontaneous
  Country: US (occurrence: US)
  Receive Date: 20150219
  Receipt Date: 20150219
  Transmission Date: 20150721
  Serious: No
  Sender: FDA-Public Use
  Company Number: US-ABBVIE-14P-163-1214706-00

PATIENT
  Age: 55 Year
  Sex: Male
  Weight: 60.38 kg

DRUGS (2)
  1. HUMIRA [Suspect]
     Active Substance: ADALIMUMAB
     Indication: CROHN^S DISEASE
     Route: 058
     Dates: start: 20040313, end: 20040313
  2. AZATHIOPRINE. [Concomitant]
     Active Substance: AZATHIOPRINE
     Indication: CROHN^S DISEASE

REACTIONS (6)
  - Influenza like illness [Recovering/Resolving]
  - Musculoskeletal pain [Not Recovered/Not Resolved]
  - Sinus disorder [Recovering/Resolving]
  - Feeding disorder [Recovering/Resolving]
  - Neck pain [Not Recovered/Not Resolved]
  - Drug hypersensitivity [Recovering/Resolving]

NARRATIVE: CASE EVENT DATE: 20130315
